FAERS Safety Report 6739954-7 (Version None)
Quarter: 2010Q2

REPORT INFORMATION
  Report Type: 
  Country: None (occurrence: None)
  Receive Date: 20100525
  Receipt Date: 20100520
  Transmission Date: 20101027
  Serious: Yes (Hospitalization)
  Sender: FDA-Public Use
  Company Number: US-BRISTOL-MYERS SQUIBB COMPANY-15028707

PATIENT
  Age: 68 Year
  Sex: Male
  Weight: 65 kg

DRUGS (3)
  1. ERBITUX [Suspect]
     Indication: GASTRIC CANCER
     Dosage: CYCLE4,DAY 8 RESTARTED-5FEB10(CYC2 DAY1);HELD-19MAR10,RESUMED-20MAR10 INT-2APR10 ALSO 483MG
     Route: 042
     Dates: start: 20091230
  2. TAXOTERE [Suspect]
     Indication: GASTRIC CANCER
     Dosage: LAST DOSE RECEIVED ON:5MAR10,HELD-19MAR10,RESUMED-20MAR10,INTERRUPTED-2APR10 ALSO 95MG
     Route: 042
     Dates: start: 20091230
  3. ELOXATIN [Suspect]
     Indication: GASTRIC CANCER
     Dosage: LAST DOSE RECEIVED ON:5MAR10,HELD-19MAR10,RESUMED-20MAR10,INTERRUPTED-2APR10 ALSO 205MG
     Route: 042
     Dates: start: 20091230

REACTIONS (4)
  - CHILLS [None]
  - DEVICE LEAKAGE [None]
  - HYPERHIDROSIS [None]
  - PYREXIA [None]
